FAERS Safety Report 9356334 (Version 2)
Quarter: 2013Q3

REPORT INFORMATION
  Report Type: Spontaneous
  Country: US (occurrence: None)
  Receive Date: 20130614
  Receipt Date: 20130712
  Transmission Date: 20140515
  Serious: Yes (Other)
  Sender: FDA-Public Use
  Company Number: USA/USA/13/0030004

PATIENT
  Age: 17 Year
  Sex: Female

DRUGS (1)
  1. ZENATANE [Suspect]
     Indication: PRODUCT USED FOR UNKNOWN INDICATION
     Dates: start: 20130531

REACTIONS (4)
  - Depressed mood [None]
  - Depression [None]
  - Product substitution issue [None]
  - Product quality issue [None]
